FAERS Safety Report 9685835 (Version 3)
Quarter: 2013Q4

REPORT INFORMATION
  Report Type: Spontaneous
  Country: US (occurrence: US)
  Receive Date: 20131113
  Receipt Date: 20131213
  Transmission Date: 20140711
  Serious: No
  Sender: FDA-Public Use
  Company Number: US-PFIZER INC-2013322747

PATIENT
  Age: 49 Year
  Sex: Female
  Weight: 70.3 kg

DRUGS (17)
  1. LYRICA [Suspect]
     Indication: FIBROMYALGIA
     Dosage: 100 MG, 3X/DAY
     Route: 048
     Dates: start: 2009, end: 201311
  2. LYRICA [Suspect]
     Indication: NEUROPATHY PERIPHERAL
     Dosage: 100 MG, 3X/DAY
     Route: 048
     Dates: start: 201012
  3. SINGULAIR [Concomitant]
     Dosage: 10 MG, 1X/DAY
  4. AVAPRO [Concomitant]
     Dosage: 300 MG, 1X/DAY
  5. CRESTOR [Concomitant]
     Dosage: 10 MG, 1X/DAY
  6. ASPIRIN [Concomitant]
     Dosage: 81 MG, 1X/DAY
  7. LOPRESSOR [Concomitant]
     Dosage: 25 MG, 2X/DAY
  8. MOBIC [Concomitant]
     Dosage: 7.5 MG, 2X/DAY
  9. TOPAMAX [Concomitant]
     Dosage: 50 MG, 3X/DAY
  10. MAXAIR [Concomitant]
     Dosage: 250 UG, UNK INHALER
  11. XOPENEX [Concomitant]
     Dosage: 45 UG, 4X/DAY INHALER
  12. ARMOUR THYROID [Concomitant]
     Dosage: 180 MG, 1X/DAY
     Dates: start: 20130612
  13. XANAX [Concomitant]
     Dosage: 0.5 MG, 1X/DAY
  14. ADVAIR [Concomitant]
     Dosage: 250/50 MG 1 PUFF, 2X/DAY
  15. B COMPLEX [Concomitant]
     Dosage: UNK
  16. NEXIUM [Concomitant]
     Dosage: 40 MG, 2X/DAY
  17. IODINE [Concomitant]
     Dosage: UNK, 2X/DAY (2 AM AND 2 PM)

REACTIONS (7)
  - Off label use [Unknown]
  - Drug withdrawal syndrome [Not Recovered/Not Resolved]
  - Feeling cold [Not Recovered/Not Resolved]
  - Hot flush [Not Recovered/Not Resolved]
  - Tremor [Not Recovered/Not Resolved]
  - Chills [Not Recovered/Not Resolved]
  - Feeling of body temperature change [Not Recovered/Not Resolved]
